FAERS Safety Report 6560168-8 (Version None)
Quarter: 2010Q1

REPORT INFORMATION
  Report Type: 
  Country: None (occurrence: None)
  Receive Date: 20100129
  Receipt Date: 20050121
  Transmission Date: 20100710
  Serious: No
  Sender: FDA-Public Use
  Company Number: US-ALLERGAN-200500582

PATIENT
  Sex: Female

DRUGS (2)
  1. BOTOX COSMETIC [Suspect]
     Indication: SKIN WRINKLING
     Dosage: 12.5UNITS, PRN
     Route: 030
  2. UNSPECIFIED ANTIHISTAMINE [Concomitant]
     Indication: SEASONAL ALLERGY

REACTIONS (4)
  - BACK PAIN [None]
  - DRY EYE [None]
  - MALAISE [None]
  - NASAL DRYNESS [None]
